FAERS Safety Report 7318400-9 (Version None)
Quarter: 2011Q1

REPORT INFORMATION
  Report Type: 
  Country: None (occurrence: None)
  Receive Date: 20110223
  Receipt Date: 20110223
  Transmission Date: 20110831
  Serious: No
  Sender: FDA-Public Use
  Company Number: None

PATIENT
  Age: 26 Year
  Sex: Female

DRUGS (3)
  1. OXYCOD/APAP [Concomitant]
  2. METHYLDOPA [Suspect]
     Dosage: 250 MG QD
     Dates: start: 20071223, end: 20080209
  3. SYNTHROID [Concomitant]

REACTIONS (12)
  - LIVER DISORDER [None]
  - NAUSEA [None]
  - DECREASED APPETITE [None]
  - ASPARTATE AMINOTRANSFERASE INCREASED [None]
  - RASH [None]
  - MONONUCLEOSIS HETEROPHILE TEST POSITIVE [None]
  - CHEST DISCOMFORT [None]
  - ALANINE AMINOTRANSFERASE INCREASED [None]
  - EXCORIATION [None]
  - PRURITUS [None]
  - PYREXIA [None]
  - JAUNDICE [None]
